FAERS Safety Report 12993787 (Version 2)
Quarter: 2016Q4

REPORT INFORMATION
  Report Type: Spontaneous
  Country: US (occurrence: US)
  Receive Date: 20161202
  Receipt Date: 20161214
  Transmission Date: 20170207
  Serious: Yes (Hospitalization, Disabling, Other)
  Sender: FDA-Public Use
  Company Number: US-JNJFOC-20161109549

PATIENT
  Age: 38 Year
  Sex: Female
  Weight: 105.7 kg

DRUGS (8)
  1. AMANTADINE [Concomitant]
     Active Substance: AMANTADINE
     Indication: TREMOR
     Route: 065
  2. ARTANE [Concomitant]
     Active Substance: TRIHEXYPHENIDYL HYDROCHLORIDE
     Indication: TREMOR
     Route: 065
  3. ATIVAN [Concomitant]
     Active Substance: LORAZEPAM
     Indication: TREMOR
     Route: 065
  4. PRISTIQ EXTENDED-RELEASE [Concomitant]
     Active Substance: DESVENLAFAXINE SUCCINATE
     Indication: DEPRESSION
     Route: 065
  5. HALDOL DECANOATE [Suspect]
     Active Substance: HALOPERIDOL DECANOATE
     Indication: PRODUCT USED FOR UNKNOWN INDICATION
     Route: 030
     Dates: start: 201501, end: 201508
  6. COPAXONE [Concomitant]
     Active Substance: GLATIRAMER ACETATE
     Indication: MULTIPLE SCLEROSIS
     Route: 065
     Dates: start: 201606
  7. INDERAL [Concomitant]
     Active Substance: PROPRANOLOL HYDROCHLORIDE
     Indication: TREMOR
     Route: 065
  8. PHENERGAN [Concomitant]
     Active Substance: PROMETHAZINE HYDROCHLORIDE
     Indication: NAUSEA
     Route: 065

REACTIONS (6)
  - Dystonia [Recovering/Resolving]
  - Tremor [Recovered/Resolved with Sequelae]
  - Hyperhidrosis [Unknown]
  - Abasia [Recovering/Resolving]
  - Muscle contracture [Not Recovered/Not Resolved]
  - Feeding disorder [Recovering/Resolving]

NARRATIVE: CASE EVENT DATE: 20150422
